FAERS Safety Report 4961960-3 (Version None)
Quarter: 2006Q2

REPORT INFORMATION
  Report Type: 
  Country: None (occurrence: None)
  Receive Date: 20060404
  Receipt Date: 20050725
  Transmission Date: 20061013
  Serious: Yes (Hospitalization)
  Sender: FDA-Public Use
  Company Number: US-MERCK-0507USA03906

PATIENT
  Age: 44 Year
  Sex: Male
  Weight: 111 kg

DRUGS (15)
  1. VIOXX [Suspect]
     Indication: INFLAMMATION
     Route: 048
     Dates: start: 20011212, end: 20020321
  2. VIOXX [Suspect]
     Route: 048
     Dates: start: 20020103, end: 20020321
  3. VIOXX [Suspect]
     Route: 048
     Dates: start: 20020711, end: 20040930
  4. OXYCONTIN [Concomitant]
     Indication: PAIN
     Route: 048
  5. VICODIN [Concomitant]
     Route: 065
  6. METHADONE HYDROCHLORIDE [Concomitant]
     Route: 048
  7. ZOLOFT [Concomitant]
     Route: 048
  8. ASPIRIN [Concomitant]
     Route: 048
  9. VIOXX [Suspect]
     Indication: PAIN
     Route: 048
     Dates: start: 20011016, end: 20011024
  10. VIOXX [Suspect]
     Route: 048
     Dates: start: 20011025, end: 20011211
  11. VIOXX [Suspect]
     Route: 048
     Dates: start: 20011212, end: 20020321
  12. VIOXX [Suspect]
     Route: 048
     Dates: start: 20020103, end: 20020321
  13. VIOXX [Suspect]
     Route: 048
     Dates: start: 20020711, end: 20040930
  14. VIOXX [Suspect]
     Route: 048
     Dates: start: 20011016, end: 20011024
  15. VIOXX [Suspect]
     Route: 048
     Dates: start: 20011025, end: 20011211

REACTIONS (5)
  - BREAKTHROUGH PAIN [None]
  - CORONARY ARTERY DISEASE [None]
  - DEPRESSION [None]
  - MYOCARDIAL INFARCTION [None]
  - WRONG TECHNIQUE IN DRUG USAGE PROCESS [None]
